FAERS Safety Report 9649409 (Version 1)
Quarter: 2013Q4

REPORT INFORMATION
  Report Type: Spontaneous
  Country: US (occurrence: US)
  Receive Date: 20131028
  Receipt Date: 20131028
  Transmission Date: 20140711
  Serious: No
  Sender: FDA-Public Use
  Company Number: US-JNJFOC-20131011247

PATIENT
  Age: 23 Year
  Sex: Male
  Weight: 70.31 kg

DRUGS (2)
  1. INVEGA SUSTENNA [Suspect]
     Indication: SCHIZOPHRENIA, PARANOID TYPE
     Route: 030
  2. COGENTIN [Concomitant]
     Route: 030
     Dates: start: 20131016

REACTIONS (1)
  - Extrapyramidal disorder [Recovered/Resolved]
